FAERS Safety Report 4266858-4 (Version None)
Quarter: 2004Q1

REPORT INFORMATION
  Report Type: 
  Country: None (occurrence: None)
  Receive Date: 20040108
  Receipt Date: 20040108
  Transmission Date: 20041129
  Serious: Yes (Hospitalization)
  Sender: FDA-Public Use
  Company Number: None

PATIENT
  Sex: Female
  Weight: 122.4712 kg

DRUGS (4)
  1. PAXIL [Suspect]
     Indication: DEPRESSION
     Dosage: 20 MG ONCE PER D, 30 MG ONCE PER D
     Dates: start: 20020310, end: 20030603
  2. PAXIL [Suspect]
     Indication: POST-TRAUMATIC STRESS DISORDER
     Dosage: 20 MG ONCE PER D, 30 MG ONCE PER D
     Dates: start: 20020310, end: 20030603
  3. PAXIL [Suspect]
     Indication: DEPRESSION
     Dosage: 20 MG ONCE PER D, 30 MG ONCE PER D
     Dates: start: 20040107, end: 20040107
  4. PAXIL [Suspect]
     Indication: POST-TRAUMATIC STRESS DISORDER
     Dosage: 20 MG ONCE PER D, 30 MG ONCE PER D
     Dates: start: 20040107, end: 20040107

REACTIONS (10)
  - ABNORMAL BEHAVIOUR [None]
  - CRYING [None]
  - DIZZINESS [None]
  - DRUG WITHDRAWAL SYNDROME [None]
  - FEELING ABNORMAL [None]
  - NIGHTMARE [None]
  - PARAESTHESIA [None]
  - PSYCHIATRIC SYMPTOM [None]
  - SOMNOLENCE [None]
  - VERTIGO [None]
